FAERS Safety Report 11125839 (Version 6)
Quarter: 2019Q2

REPORT INFORMATION
  Report Type: Spontaneous
  Country: US (occurrence: US)
  Receive Date: 20150520
  Receipt Date: 20190515
  Transmission Date: 20190711
  Serious: Yes (Other)
  Sender: FDA-Public Use
  Company Number: US-PFIZER INC-2015165202

PATIENT
  Age: 65 Year
  Sex: Male
  Weight: 78 kg

DRUGS (2)
  1. LYRICA [Suspect]
     Active Substance: PREGABALIN
     Dosage: 75 MG, 2X/DAY
     Route: 048
  2. LYRICA [Suspect]
     Active Substance: PREGABALIN
     Indication: NEUROPATHY PERIPHERAL
     Dosage: UNK
     Dates: end: 2015

REACTIONS (13)
  - Pain in extremity [Unknown]
  - Burning sensation [Unknown]
  - Arthritis [Unknown]
  - Paraesthesia [Unknown]
  - Gait disturbance [Unknown]
  - Therapeutic product effect incomplete [Unknown]
  - Hypoaesthesia [Unknown]
  - Back pain [Unknown]
  - Nasopharyngitis [Unknown]
  - Insomnia [Unknown]
  - Peripheral nerve injury [Unknown]
  - Pain [Not Recovered/Not Resolved]
  - Nervous system disorder [Unknown]
